FAERS Safety Report 6783621-0 (Version None)
Quarter: 2010Q2

REPORT INFORMATION
  Report Type: 
  Country: None (occurrence: None)
  Receive Date: 20100622
  Receipt Date: 20100609
  Transmission Date: 20101027
  Serious: Yes (Other)
  Sender: FDA-Public Use
  Company Number: PHHY2010DE37731

PATIENT

DRUGS (2)
  1. LEPONEX [Suspect]
     Dosage: UNK
     Route: 048
  2. VENLAFAXINE HCL [Concomitant]

REACTIONS (1)
  - ELECTROCARDIOGRAM QT PROLONGED [None]
